FAERS Safety Report 4718380-6 (Version None)
Quarter: 2005Q3

REPORT INFORMATION
  Report Type: 
  Country: None (occurrence: None)
  Receive Date: 20050719
  Receipt Date: 20050509
  Transmission Date: 20060218
  Serious: Yes (Hospitalization, Other)
  Sender: FDA-Public Use
  Company Number: 2005072147

PATIENT
  Age: 70 Year
  Sex: Female
  Weight: 63.5036 kg

DRUGS (5)
  1. CELEBREX [Suspect]
     Indication: ARTHRALGIA
     Dosage: (1 IN 1 D), ORAL
     Route: 048
  2. SYNTHROID [Concomitant]
  3. FIORINAL [Concomitant]
  4. AMITRIPTYLINE HCL [Concomitant]
  5. ALL OTHER THERAPEUTIC PRODUCTS (ALL OTHER THERAPEUTIC PRODUCTS) [Concomitant]

REACTIONS (1)
  - GASTRIC HAEMORRHAGE [None]
